FAERS Safety Report 9081139 (Version 1)
Quarter: 2013Q1

REPORT INFORMATION
  Report Type: Report from Study
  Country: US (occurrence: US)
  Receive Date: 20130130
  Receipt Date: 20130130
  Transmission Date: 20140127
  Serious: No
  Sender: FDA-Public Use
  Company Number: US-ABBOTT-12P-163-0959409-00

PATIENT
  Age: 71 Year
  Sex: Male

DRUGS (6)
  1. HUMIRA 40 MG/0.8 ML PEN [Suspect]
     Indication: PSORIASIS
     Dates: start: 20120521
  2. A COUPLE OF BETAS [Concomitant]
     Indication: HYPERTENSION
  3. HCTZ [Concomitant]
     Indication: FLUID RETENTION
  4. UNKNOWN MEDICATION [Concomitant]
     Indication: THYROID DISORDER
  5. LABETALOL [Concomitant]
     Indication: PRODUCT USED FOR UNKNOWN INDICATION
  6. FLOMAX [Concomitant]
     Indication: PRODUCT USED FOR UNKNOWN INDICATION

REACTIONS (1)
  - Diarrhoea [Not Recovered/Not Resolved]
